FAERS Safety Report 6687175-9 (Version None)
Quarter: 2010Q2

REPORT INFORMATION
  Report Type: 
  Country: None (occurrence: None)
  Receive Date: 20100419
  Receipt Date: 20100409
  Transmission Date: 20101027
  Serious: Yes (Hospitalization)
  Sender: FDA-Public Use
  Company Number: US-WATSON-2010-04718

PATIENT
  Sex: Female
  Weight: 74.8 kg

DRUGS (6)
  1. FENTANYL-100 [Suspect]
     Indication: NEUROPATHY PERIPHERAL
     Dosage: 1 PATCH, Q 3 DAYS
     Route: 062
     Dates: start: 20100404, end: 20100404
  2. FENTANYL-100 [Suspect]
     Indication: SURGERY
  3. FENTANYL-100 [Suspect]
     Indication: FIBROMYALGIA
  4. FENTANYL-100 [Suspect]
     Indication: PAIN
  5. GLUCOPHAGE [Concomitant]
     Indication: DIABETES MELLITUS
     Dosage: UNK
     Route: 048
  6. BP PILL [Concomitant]
     Indication: BLOOD PRESSURE
     Dosage: 1 TABLET, QAM
     Route: 048

REACTIONS (9)
  - ASTHENIA [None]
  - BODY TEMPERATURE INCREASED [None]
  - CYANOSIS [None]
  - DEVICE LEAKAGE [None]
  - DRUG EFFECT INCREASED [None]
  - DRUG LEVEL INCREASED [None]
  - DRUG TOXICITY [None]
  - PRODUCT ADHESION ISSUE [None]
  - PRODUCT SUBSTITUTION ISSUE [None]
